FAERS Safety Report 8220373-1 (Version None)
Quarter: 2012Q1

REPORT INFORMATION
  Report Type: 
  Country: None (occurrence: None)
  Receive Date: 20120320
  Receipt Date: 20120313
  Transmission Date: 20120608
  Serious: Yes (Hospitalization)
  Sender: FDA-Public Use
  Company Number: US-BAYER-2011-029310

PATIENT
  Age: 17 Year
  Sex: Female
  Weight: 112 kg

DRUGS (3)
  1. DROSPIRENONE AND ETHINYL ESTRADIOL [Suspect]
     Indication: CONTRACEPTION
     Dosage: UNK
     Dates: start: 20081215, end: 20090324
  2. AMOXICILLIN [Concomitant]
     Dosage: UNK
     Route: 048
     Dates: start: 20090101
  3. ERGOTAMINE TARTRATE [Concomitant]
     Dosage: UNK
     Route: 048
     Dates: start: 20090101

REACTIONS (6)
  - INJURY [None]
  - PULMONARY EMBOLISM [None]
  - EMOTIONAL DISTRESS [None]
  - GENERAL PHYSICAL HEALTH DETERIORATION [None]
  - PAIN [None]
  - ANXIETY [None]
